FAERS Safety Report 9243051 (Version 1)
Quarter: 2013Q2

REPORT INFORMATION
  Report Type: Spontaneous
  Country: JP (occurrence: JP)
  Receive Date: 20130419
  Receipt Date: 20130419
  Transmission Date: 20140414
  Serious: Yes (Hospitalization, Other)
  Sender: FDA-Public Use
  Company Number: JP-ELI_LILLY_AND_COMPANY-JP201304002413

PATIENT
  Age: 42 Year
  Sex: Female

DRUGS (8)
  1. ZYPREXA [Suspect]
     Dosage: UNK
     Route: 048
  2. DEPAKENE [Concomitant]
     Dosage: UNK
     Route: 048
  3. CONTOMIN [Concomitant]
     Dosage: UNK
     Route: 048
  4. ANAFRANIL [Concomitant]
     Dosage: UNK
     Route: 048
  5. VEGETAMIN A [Concomitant]
     Dosage: UNK
  6. VEGETAMIN B [Concomitant]
     Dosage: UNK, PRN
  7. LANDSEN [Concomitant]
     Dosage: 1 MG, UNK
  8. BROTIZOLAM [Concomitant]
     Dosage: 0.25 MG, PRN

REACTIONS (4)
  - Shock [Recovered/Resolved]
  - Renal failure acute [Recovered/Resolved]
  - Hyperglycaemia [Unknown]
  - Diabetic coma [Recovered/Resolved]
